FAERS Safety Report 8900766 (Version 1)
Quarter: 2012Q4

REPORT INFORMATION
  Report Type: 
  Country: US (occurrence: US)
  Receive Date: 20121109
  Receipt Date: 20121109
  Transmission Date: 20130627
  Serious: No
  Sender: FDA-Public Use
  Company Number: US-PFIZER INC-2012276621

PATIENT
  Age: 73 Year
  Sex: Female
  Weight: 61.22 kg

DRUGS (4)
  1. REVATIO [Suspect]
     Indication: PULMONARY HYPERTENSION
     Dosage: 20 mg, 3x/day
     Route: 048
     Dates: start: 2009
  2. LISINOPRIL [Concomitant]
     Dosage: 20 mg, UNK
  3. LASIX [Concomitant]
     Dosage: 20 mg, 1x/day
  4. SINGULAIR [Concomitant]
     Dosage: 10 mg, 1x/day

REACTIONS (1)
  - Blood pressure decreased [Unknown]
